FAERS Safety Report 9372470 (Version 1)
Quarter: 2013Q2

REPORT INFORMATION
  Report Type: Report from Study
  Country: US (occurrence: US)
  Receive Date: 20130627
  Receipt Date: 20130627
  Transmission Date: 20140414
  Serious: Yes (Other)
  Sender: FDA-Public Use
  Company Number: US-MYLANLABS-2012S1025291

PATIENT
  Age: 37 Year
  Sex: Female
  Weight: 113.4 kg

DRUGS (2)
  1. CLOZAPINE TABLETS [Suspect]
     Indication: DELUSION
     Route: 048
     Dates: start: 20121012, end: 20121018
  2. RISPERDAL [Concomitant]
     Route: 048
     Dates: start: 20120216

REACTIONS (1)
  - Granulocytopenia [Not Recovered/Not Resolved]
